FAERS Safety Report 8216049-7 (Version None)
Quarter: 2012Q1

REPORT INFORMATION
  Report Type: 
  Country: None (occurrence: None)
  Receive Date: 20120316
  Receipt Date: 20120313
  Transmission Date: 20120608
  Serious: Yes (Other)
  Sender: FDA-Public Use
  Company Number: US-BAYER-2012-020376

PATIENT
  Age: 53 Year
  Sex: Female

DRUGS (10)
  1. NEURONTIN [Concomitant]
  2. PRAVACHOL [Concomitant]
  3. CITALOPRAM HYDROBROMIDE [Concomitant]
  4. METFORMIN HYDROCHLORIDE [Concomitant]
     Dosage: 500 MG, BID
  5. PRILOSEC [Concomitant]
  6. REQUIP [Concomitant]
  7. SYMBICORT [Concomitant]
  8. BETASERON [Suspect]
     Indication: MULTIPLE SCLEROSIS
  9. VITAMIN D [Concomitant]
  10. COPAXONE [Concomitant]

REACTIONS (2)
  - DRUG HYPERSENSITIVITY [None]
  - HEPATITIS B [None]
